FAERS Safety Report 8162268-8 (Version None)
Quarter: 2012Q1

REPORT INFORMATION
  Report Type: 
  Country: None (occurrence: None)
  Receive Date: 20120224
  Receipt Date: 20120216
  Transmission Date: 20120608
  Serious: Yes (Hospitalization)
  Sender: FDA-Public Use
  Company Number: US-ASTELLAS-2012US001962

PATIENT
  Sex: Female
  Weight: 50 kg

DRUGS (4)
  1. PROGRAF [Suspect]
     Indication: RENAL TRANSPLANT
     Dosage: 1 MG, BID
     Route: 048
  2. MYCOPHENOLATE MOFETIL (CELLCEPT) [Concomitant]
     Indication: RENAL TRANSPLANT
     Dosage: 500 MG, BID
     Route: 048
  3. PROGRAF [Suspect]
     Indication: PANCREAS TRANSPLANT
  4. MYCOPHENOLATE MOFETIL (CELLCEPT) [Concomitant]
     Indication: PANCREAS TRANSPLANT

REACTIONS (3)
  - OFF LABEL USE [None]
  - INTESTINAL ULCER PERFORATION [None]
  - ESCHERICHIA INFECTION [None]
